FAERS Safety Report 4616927-1 (Version None)
Quarter: 2005Q1

REPORT INFORMATION
  Report Type: 
  Country: None (occurrence: None)
  Receive Date: 20050321
  Receipt Date: 20050307
  Transmission Date: 20050727
  Serious: Yes (Other)
  Sender: FDA-Public Use
  Company Number: 2004241727JP

PATIENT
  Age: 9 Year
  Sex: Male
  Weight: 22.6 kg

DRUGS (1)
  1. GENOTROPIN [Suspect]
     Indication: PRADER-WILLI SYNDROME
     Dosage: 0.7 MG (DAILY), SUBCUTANEOUS
     Route: 058
     Dates: start: 20021127

REACTIONS (7)
  - BLAST CELLS PRESENT [None]
  - CONDITION AGGRAVATED [None]
  - LEUKAEMIA [None]
  - LYMPHOCYTE MORPHOLOGY ABNORMAL [None]
  - NEOPLASM [None]
  - SCOLIOSIS [None]
  - WALKING AID USER [None]
